FAERS Safety Report 14351344 (Version 3)
Quarter: 2018Q2

REPORT INFORMATION
  Report Type: Spontaneous
  Country: US (occurrence: US)
  Receive Date: 20180104
  Receipt Date: 20180514
  Transmission Date: 20180711
  Serious: No
  Sender: FDA-Public Use
  Company Number: US-PFIZER INC-2017552990

PATIENT
  Age: 55 Year
  Sex: Female

DRUGS (4)
  1. DOCETAXEL. [Suspect]
     Active Substance: DOCETAXEL
     Indication: BREAST CANCER
     Dosage: 6 CYCLES (3 WEEKS FOR FIRST 4 CYCLES, THEN TOOK A BREAK FOR 1 1/2 MONTHS BEFORE TAKING REMAINING 2)
     Dates: start: 20130723, end: 20131218
  2. DOCETAXEL. [Suspect]
     Active Substance: DOCETAXEL
     Indication: BREAST CANCER
     Dosage: 6 CYCLES (3 WEEKS FOR FIRST 4 CYCLES, THEN TOOK A BREAK FOR 1 1/2 MONTHS BEFORE TAKING REMAINING 2)
     Dates: start: 20130723, end: 20131218
  3. TAXOTERE [Suspect]
     Active Substance: DOCETAXEL
     Indication: BREAST CANCER
     Dosage: 6 CYCLES (3 WEEKS FOR FIRST 4 CYCLES, THEN TOOK A BREAK FOR 1 1/2 MONTHS BEFORE TAKING REMAINING 2)
     Dates: start: 20130723, end: 20131218
  4. PARAPLATIN [Concomitant]
     Active Substance: CARBOPLATIN
     Dosage: UNK

REACTIONS (2)
  - Madarosis [Not Recovered/Not Resolved]
  - Alopecia [Not Recovered/Not Resolved]

NARRATIVE: CASE EVENT DATE: 20130823
